FAERS Safety Report 12426719 (Version 1)
Quarter: 2016Q2

REPORT INFORMATION
  Report Type: Report from Study
  Country: US (occurrence: US)
  Receive Date: 20160601
  Receipt Date: 20160601
  Transmission Date: 20160815
  Serious: No
  Sender: FDA-Public Use
  Company Number: PHEH2016US013339

PATIENT
  Sex: Female
  Weight: 120.5 kg

DRUGS (1)
  1. ACZ885 [Suspect]
     Active Substance: CANAKINUMAB
     Indication: JUVENILE IDIOPATHIC ARTHRITIS
     Dosage: 300 MG, EVERY 4 WEEKS
     Route: 058

REACTIONS (3)
  - Bone deformity [Unknown]
  - Inappropriate schedule of drug administration [Unknown]
  - Wrist deformity [Unknown]
